FAERS Safety Report 5957872-9 (Version None)
Quarter: 2008Q4

REPORT INFORMATION
  Report Type: 
  Country: None (occurrence: None)
  Receive Date: 20081117
  Receipt Date: 20081103
  Transmission Date: 20090506
  Serious: Yes (Hospitalization)
  Sender: FDA-Public Use
  Company Number: 20085768

PATIENT
  Sex: Female

DRUGS (1)
  1. LIORESAL [Suspect]
     Indication: MUSCLE SPASTICITY
     Dosage: 101 MCG, DAILY,  INTRATHECAL
     Route: 037

REACTIONS (5)
  - HYPERTONIA [None]
  - IRRITABILITY [None]
  - POSTOPERATIVE RESPIRATORY DISTRESS [None]
  - RASH MACULAR [None]
  - WITHDRAWAL SYNDROME [None]
